FAERS Safety Report 9093129 (Version 2)
Quarter: 2013Q1

REPORT INFORMATION
  Report Type: Spontaneous
  Country: JP (occurrence: JP)
  Receive Date: 20130218
  Receipt Date: 20130222
  Transmission Date: 20140127
  Serious: Yes (Death)
  Sender: FDA-Public Use
  Company Number: JP-BAXTER-2013BAX005989

PATIENT
  Sex: Male

DRUGS (4)
  1. DIANEAL-N PD-4 2.5 PD SOLUTION [Suspect]
     Indication: RENAL FAILURE CHRONIC
     Route: 033
     Dates: end: 20130209
  2. DIANEAL-N PD-4 2.5 PD SOLUTION [Suspect]
     Route: 033
     Dates: end: 20130209
  3. DIANEAL-N PD-4 2.5 PD SOLUTION [Suspect]
     Route: 033
     Dates: end: 20130209
  4. EXTRANEAL PD SOLUTION [Suspect]
     Indication: RENAL FAILURE CHRONIC
     Route: 033
     Dates: end: 20130209

REACTIONS (1)
  - Arrhythmia [Fatal]
